FAERS Safety Report 23532966 (Version 2)
Quarter: 2024Q1

REPORT INFORMATION
  Report Type: Spontaneous
  Country: DE (occurrence: DE)
  Receive Date: 20240216
  Receipt Date: 20240229
  Transmission Date: 20240409
  Serious: Yes (Other)
  Sender: FDA-Public Use
  Company Number: DE-SANMEDPRD-2024-DEU-001025

PATIENT

DRUGS (1)
  1. LATANOPROST\NETARSUDIL MESYLATE [Suspect]
     Active Substance: LATANOPROST\NETARSUDIL MESYLATE
     Indication: Glaucoma
     Dosage: 1 X 1 DROPS
     Route: 047
     Dates: start: 202307, end: 202309

REACTIONS (1)
  - Macular oedema [Recovered/Resolved]
